FAERS Safety Report 15640474 (Version 1)
Quarter: 2018Q4

REPORT INFORMATION
  Report Type: Report from Study
  Country: GT (occurrence: GT)
  Receive Date: 20181120
  Receipt Date: 20181120
  Transmission Date: 20190205
  Serious: Yes (Hospitalization)
  Sender: FDA-Public Use
  Company Number: GT-BAYER-2018-213959

PATIENT
  Age: 58 Year
  Sex: Female

DRUGS (1)
  1. BETAFERON [Suspect]
     Active Substance: INTERFERON BETA-1B
     Indication: MULTIPLE SCLEROSIS
     Dosage: UNK
     Dates: start: 20181010

REACTIONS (1)
  - Anal fissure [Recovered/Resolved with Sequelae]

NARRATIVE: CASE EVENT DATE: 20181110
